FAERS Safety Report 6709628-7 (Version None)
Quarter: 2010Q2

REPORT INFORMATION
  Report Type: 
  Country: None (occurrence: None)
  Receive Date: 20100504
  Receipt Date: 20100426
  Transmission Date: 20101027
  Serious: Yes (Other)
  Sender: FDA-Public Use
  Company Number: US-BAYER-201014727BCC

PATIENT
  Age: 38 Year
  Sex: Female
  Weight: 68 kg

DRUGS (1)
  1. ALEVE (CAPLET) [Suspect]
     Indication: OROPHARYNGEAL PAIN
     Dosage: TOTAL DAILY DOSE: 220 MG  UNIT DOSE: 220 MG
     Route: 048
     Dates: start: 20100425

REACTIONS (3)
  - DYSPNOEA [None]
  - HEART RATE IRREGULAR [None]
  - THROAT TIGHTNESS [None]
